FAERS Safety Report 9319992 (Version 1)
Quarter: 2013Q2

REPORT INFORMATION
  Report Type: Spontaneous
  Country: FR (occurrence: FR)
  Receive Date: 20130530
  Receipt Date: 20130530
  Transmission Date: 20140414
  Serious: Yes (Other)
  Sender: FDA-Public Use
  Company Number: FR-JNJFOC-20130510919

PATIENT
  Age: 57 Year
  Sex: Female

DRUGS (4)
  1. HALDOL [Suspect]
     Indication: VOMITING
     Route: 065
     Dates: start: 20130408, end: 20130415
  2. OXALIPLATIN [Suspect]
     Indication: PANCREATIC CARCINOMA
     Route: 042
     Dates: start: 20130225, end: 20130315
  3. IRINOTECAN [Suspect]
     Indication: PANCREATIC CARCINOMA
     Route: 042
     Dates: start: 20130225, end: 20130315
  4. FLUOROURACIL [Suspect]
     Indication: PANCREATIC CARCINOMA
     Route: 042
     Dates: start: 20130225, end: 20130315

REACTIONS (3)
  - Motor dysfunction [Not Recovered/Not Resolved]
  - Paraesthesia [Not Recovered/Not Resolved]
  - Polyneuropathy [Not Recovered/Not Resolved]
